FAERS Safety Report 7002223-4 (Version None)
Quarter: 2010Q3

REPORT INFORMATION
  Report Type: 
  Country: None (occurrence: None)
  Receive Date: 20100920
  Receipt Date: 20070611
  Transmission Date: 20110219
  Serious: Yes (Other)
  Sender: FDA-Public Use
  Company Number: US-ASTRAZENECA-2006UW11117

PATIENT
  Age: 609 Month
  Sex: Female
  Weight: 97.5 kg

DRUGS (23)
  1. SEROQUEL [Suspect]
     Indication: ANXIETY
     Dosage: 25 MG - 200 MG
     Route: 048
     Dates: start: 20040209, end: 20060101
  2. SEROQUEL [Suspect]
     Indication: DEPRESSION
     Dosage: 25 MG - 200 MG
     Route: 048
     Dates: start: 20040209, end: 20060101
  3. SEROQUEL [Suspect]
     Dosage: 25 MG - 200 MG SAMPLES
     Route: 048
     Dates: end: 20060101
  4. SEROQUEL [Suspect]
     Dosage: 25 MG - 200 MG SAMPLES
     Route: 048
     Dates: end: 20060101
  5. RISPERDAL [Concomitant]
  6. MAXZIDE [Concomitant]
     Dosage: 37.5 / 25, 25 MG DAILY
     Route: 048
     Dates: start: 19990701
  7. SOMA [Concomitant]
     Indication: BACK PAIN
     Dosage: 325 MG, 350
     Dates: start: 19990701
  8. VICODIN [Concomitant]
     Indication: BACK PAIN
     Dosage: 5 / 500, EVERY 6-4 HOURS
     Route: 048
     Dates: start: 19990701
  9. PAXIL [Concomitant]
     Dosage: 20 MG - 40 MG
     Route: 048
     Dates: start: 20010822
  10. WELLBUTRIN [Concomitant]
     Dosage: 250 MG - 500 MG
     Route: 048
     Dates: start: 20040209
  11. ATIVAN [Concomitant]
     Dosage: 0.5 MG - 10 MG
     Route: 048
     Dates: start: 20040209
  12. LIPITOR [Concomitant]
     Dates: start: 20040209
  13. COZAAR [Concomitant]
     Dosage: 25 MG - 50 MG
     Route: 048
     Dates: start: 20040209
  14. XANAX [Concomitant]
     Dates: start: 20040209
  15. RELAFEN [Concomitant]
     Dates: start: 20040209
  16. TOPAMAX [Concomitant]
     Dates: start: 20040209
  17. ULTRAM [Concomitant]
     Route: 048
     Dates: start: 20040209
  18. RESTORIL [Concomitant]
     Indication: INSOMNIA
     Dates: start: 20040830
  19. NAPROSYN [Concomitant]
     Dates: start: 20041111
  20. TRAZODONE HCL [Concomitant]
     Dates: start: 20041111
  21. HYZAAR [Concomitant]
     Dosage: 50 / 12.5
     Dates: start: 20050907
  22. ELAVIL [Concomitant]
     Dates: start: 20050907
  23. ZETIA [Concomitant]
     Dosage: 10 QD
     Route: 048
     Dates: start: 20050907

REACTIONS (8)
  - BLOOD GLUCOSE INCREASED [None]
  - BLOOD TRIGLYCERIDES INCREASED [None]
  - CHEST PAIN [None]
  - DIABETES MELLITUS [None]
  - FATIGUE [None]
  - HYPERHIDROSIS [None]
  - TREMOR [None]
  - WEIGHT INCREASED [None]
